FAERS Safety Report 17063166 (Version 1)
Quarter: 2019Q4

REPORT INFORMATION
  Report Type: Spontaneous
  Country: DE (occurrence: DE)
  Receive Date: 20191122
  Receipt Date: 20191122
  Transmission Date: 20200122
  Serious: Yes (Other)
  Sender: FDA-Public Use
  Company Number: DE-ACCORD-161849

PATIENT
  Age: 27 Year
  Sex: Female
  Weight: 46 kg

DRUGS (3)
  1. QUETIAPINE. [Suspect]
     Active Substance: QUETIAPINE
     Indication: SLEEP DISORDER
     Dosage: 6. - 38.2. GESTATIONAL WEEK
     Route: 048
  2. FOLSAEURE [Concomitant]
     Active Substance: FOLIC ACID
     Indication: PROPHYLAXIS OF NEURAL TUBE DEFECT
     Dosage: UNKNOWN TRIMESTER
     Route: 048
  3. PROTHIPENDYL/PROTHIPENDYL HYDROCHLORIDE [Concomitant]
     Indication: SLEEP DISORDER
     Dosage: 0. - 6. GESTATIONAL WEEK
     Route: 048

REACTIONS (2)
  - Gestational diabetes [Recovered/Resolved]
  - Maternal exposure during pregnancy [Unknown]
